FAERS Safety Report 23908459 (Version 2)
Quarter: 2024Q2

REPORT INFORMATION
  Report Type: Spontaneous
  Country: CA (occurrence: CA)
  Receive Date: 20240528
  Receipt Date: 20240608
  Transmission Date: 20240716
  Serious: Yes (Other)
  Sender: FDA-Public Use
  Company Number: CA-TEVA-VS-3202455

PATIENT
  Age: 10 Month
  Sex: Female

DRUGS (8)
  1. PREDNISONE [Suspect]
     Active Substance: PREDNISONE
     Indication: Systemic mastocytosis
     Dosage: HIGH DOSE PREDNISONE
     Route: 065
  2. IMATINIB [Suspect]
     Active Substance: IMATINIB
     Indication: Systemic mastocytosis
     Route: 065
  3. TOPIRAMATE [Concomitant]
     Active Substance: TOPIRAMATE
     Indication: Seizure
     Route: 065
  4. DASATINIB [Suspect]
     Active Substance: DASATINIB
     Indication: Systemic mastocytosis
     Route: 065
     Dates: start: 2011
  5. Cromoglycate sodium [Concomitant]
     Indication: Product used for unknown indication
     Route: 065
  6. LANSOPRAZOLE [Concomitant]
     Active Substance: LANSOPRAZOLE
     Indication: Product used for unknown indication
     Route: 065
  7. CALCIUM [Concomitant]
     Active Substance: CALCIUM
     Indication: Product used for unknown indication
     Route: 065
  8. INTERFERON [Concomitant]
     Active Substance: INTERFERON
     Indication: Systemic mastocytosis
     Dosage: INTERFERON ALPHA
     Route: 065

REACTIONS (8)
  - Failure to thrive [Unknown]
  - Gastrointestinal disorder [Unknown]
  - Drug ineffective [Unknown]
  - Stevens-Johnson syndrome [Unknown]
  - Idiopathic intracranial hypertension [Unknown]
  - Osteoporosis [Unknown]
  - Bone development abnormal [Unknown]
  - Adrenal insufficiency [Unknown]
